FAERS Safety Report 6497035-4 (Version None)
Quarter: 2009Q4

REPORT INFORMATION
  Report Type: 
  Country: None (occurrence: None)
  Receive Date: 20091215
  Receipt Date: 20090223
  Transmission Date: 20100525
  Serious: No
  Sender: FDA-Public Use
  Company Number: A0765080A

PATIENT
  Age: 76 Year
  Sex: Male

DRUGS (5)
  1. AVODART [Suspect]
     Indication: BENIGN PROSTATIC HYPERPLASIA
     Dosage: .5MG PER DAY
     Route: 048
     Dates: start: 20070901
  2. TERAZOSIN HCL [Concomitant]
     Dosage: 10MG PER DAY
     Route: 048
     Dates: start: 20060101
  3. DILTIAZEM [Concomitant]
     Dosage: 180MG PER DAY
     Route: 048
     Dates: start: 20070101
  4. SPIRIVA [Concomitant]
     Route: 048
     Dates: start: 20070101
  5. METOPROLOL [Concomitant]
     Dosage: 50MG TWICE PER DAY
     Route: 048
     Dates: start: 20070101

REACTIONS (3)
  - DRUG INEFFECTIVE [None]
  - OVERDOSE [None]
  - POLLAKIURIA [None]
